FAERS Safety Report 8597344-9 (Version None)
Quarter: 2012Q3

REPORT INFORMATION
  Report Type: 
  Country: None (occurrence: None)
  Receive Date: 20120816
  Receipt Date: 20120810
  Transmission Date: 20120928
  Serious: No
  Sender: FDA-Public Use
  Company Number: US-PFIZER INC-2012178602

PATIENT
  Age: 57 Year
  Sex: Female
  Weight: 79.365 kg

DRUGS (4)
  1. XANAX [Concomitant]
     Indication: NERVOUSNESS
     Dosage: 1 MG, 2X/DAY
  2. PREMARIN [Suspect]
     Indication: HORMONE REPLACEMENT THERAPY
     Dosage: 1 MG, 2X/WEEK
     Route: 067
  3. ESTRADIOL [Concomitant]
     Indication: HORMONE REPLACEMENT THERAPY
     Dosage: 2 MG, DAILY
  4. WELLBUTRIN [Concomitant]
     Indication: DEPRESSION
     Dosage: 200 MG, 2X/DAY

REACTIONS (4)
  - GENITOURINARY TRACT INFECTION [None]
  - EXPIRED DRUG ADMINISTERED [None]
  - PRODUCT PHYSICAL ISSUE [None]
  - VULVOVAGINAL DISCOMFORT [None]
